FAERS Safety Report 6505804-7 (Version None)
Quarter: 2009Q4

REPORT INFORMATION
  Report Type: 
  Country: None (occurrence: None)
  Receive Date: 20091218
  Receipt Date: 20091210
  Transmission Date: 20100525
  Serious: Yes (Death, Life-Threatening)
  Sender: FDA-Public Use
  Company Number: JP-GENENTECH-279716

PATIENT
  Sex: Male

DRUGS (11)
  1. RITUXAN [Suspect]
     Indication: DIFFUSE LARGE B-CELL LYMPHOMA
     Dosage: 600 MG, UNK
     Route: 042
     Dates: start: 20080426
  2. CYCLOPHOSPHAMIDE [Concomitant]
     Indication: DIFFUSE LARGE B-CELL LYMPHOMA
     Dosage: 660 MG, UNK
     Route: 042
     Dates: start: 20080412, end: 20081016
  3. VINCRISTINE SULFATE [Concomitant]
     Indication: DIFFUSE LARGE B-CELL LYMPHOMA
     Dosage: 1.1 MG, UNK
     Route: 042
     Dates: start: 20080412, end: 20081016
  4. PREDNISOLONE [Concomitant]
     Indication: DIFFUSE LARGE B-CELL LYMPHOMA
     Dosage: 50 MG, QD
     Route: 048
     Dates: start: 20080412, end: 20081020
  5. DOXORUBICIN HCL [Concomitant]
     Indication: DIFFUSE LARGE B-CELL LYMPHOMA
     Dosage: 30 MG, UNK
     Route: 042
     Dates: start: 20080412, end: 20081016
  6. ITRACONAZOLE [Concomitant]
     Indication: PROPHYLAXIS
     Dosage: 100 MG, QD
     Route: 048
     Dates: start: 20080411
  7. PARIET [Concomitant]
     Indication: GASTRITIS
     Dosage: 10 MG, QD
     Route: 048
     Dates: start: 20080411
  8. PARIET [Concomitant]
     Indication: REFLUX OESOPHAGITIS
  9. PURSENNID [Concomitant]
     Indication: CONSTIPATION
     Dosage: 36 MG, QD
     Route: 048
     Dates: start: 20080411
  10. MAGNESIUM OXIDE [Concomitant]
     Indication: CONSTIPATION
     Dosage: 750 MG, QD
     Route: 048
     Dates: start: 20080411
  11. LASIX [Concomitant]
     Indication: OEDEMA PERIPHERAL
     Dosage: 20 MG, QD
     Route: 048
     Dates: start: 20080924

REACTIONS (3)
  - APLASIA PURE RED CELL [None]
  - HISTIOCYTOSIS HAEMATOPHAGIC [None]
  - PNEUMOCYSTIS JIROVECI PNEUMONIA [None]
